FAERS Safety Report 16608756 (Version 1)
Quarter: 2019Q3

REPORT INFORMATION
  Report Type: Spontaneous
  Country: NL (occurrence: NL)
  Receive Date: 20190722
  Receipt Date: 20190722
  Transmission Date: 20191004
  Serious: Yes (Death)
  Sender: FDA-Public Use
  Company Number: NL-PFIZER INC-2019313111

PATIENT
  Age: 72 Year
  Sex: Male
  Weight: 76 kg

DRUGS (15)
  1. PERINDOPRIL [Concomitant]
     Active Substance: PERINDOPRIL
     Dosage: 1 X PER DAY 1 PEICE; 08:00
  2. AMIODARONE HCL [Suspect]
     Active Substance: AMIODARONE HYDROCHLORIDE
     Indication: ATRIAL FLUTTER
     Dosage: A SINGLE ADMINISTRATION AMIODARONE 150 MG IV
     Route: 042
     Dates: end: 20190526
  3. AMOXICILLIN MYLAN [Concomitant]
     Active Substance: AMOXICILLIN
     Dosage: 3 X PER DAY 1 PIECE EVERY 8 HOURS-- UNTIL  24-5-19; 08:00; 15:00; 22:00;
  4. AMIODARONE HCL [Suspect]
     Active Substance: AMIODARONE HYDROCHLORIDE
     Indication: ATRIAL FLUTTER
     Dosage: 1X PER DAY100 MG
     Route: 048
     Dates: start: 2018, end: 20190526
  5. XARELTO [Concomitant]
     Active Substance: RIVAROXABAN
     Dosage: PER DAY 1 PIECE 08:00;
  6. VASELINE [PARAFFIN] [Concomitant]
     Active Substance: PARAFFIN
     Dosage: IF NECESSARY 1 X DAILY DOSE OF OWN MEDICATION; 8 A.M. (IF REQUIRED);
  7. AERIUS (DESLORATADINE) [Concomitant]
     Active Substance: DESLORATADINE
     Dosage: 1 X PER DAY 1 PIECE; 18:00;
  8. AMLODIPINE [Concomitant]
     Active Substance: AMLODIPINE BESYLATE
     Dosage: PER DAY 1 PIECE
  9. ROSUVASTATIN ARISTO [Concomitant]
     Dosage: 1 X PER DAY 1 PIECE; 22:00
  10. PANTOPRAZOL AUROBINDO [Concomitant]
     Active Substance: PANTOPRAZOLE SODIUM
     Dosage: PER DAY 1 PIECE 07:00;
  11. METOPROLOL SUCCINATE. [Concomitant]
     Active Substance: METOPROLOL SUCCINATE
     Dosage: PER DAY 1 PIECE 12:00
  12. LOCOID [Concomitant]
     Active Substance: HYDROCORTISONE BUTYRATE
     Dosage: UNK, UNK
  13. COMBODART [Concomitant]
     Active Substance: DUTASTERIDE\TAMSULOSIN
     Dosage: 1 X PER DAY 1 PIECE; 22:00
  14. NITROLINGUAL [Concomitant]
     Active Substance: NITROGLYCERIN
     Dosage: IF NEEDED IN CASE OF CHEST PAIN 1 SPRAY SUBLINGUALLY. IF NEEDED REPEAT AFTER 5 MINUTES AND IMMEDIATE
  15. FERRO FUMARAT [Concomitant]
     Dosage: 3 X PER DAY 1 PIECE; 08:00; 12:00; 17:00

REACTIONS (1)
  - Interstitial lung disease [Fatal]

NARRATIVE: CASE EVENT DATE: 201903
